FAERS Safety Report 8761005 (Version 1)
Quarter: 2012Q4

REPORT INFORMATION
  Report Type: 
  Country: CN (occurrence: CN)
  Receive Date: 20120830
  Receipt Date: 20120830
  Transmission Date: 20130627
  Serious: Yes (Other)
  Sender: FDA-Public Use
  Company Number: CN-ABBOTT-12P-035-0973745-00

PATIENT

DRUGS (2)
  1. CYCLOSPORINE [Suspect]
     Indication: APLASTIC ANAEMIA
     Dosage: 5-8 mg/kg/d
     Route: 048
  2. LAPINE T-LYMPHOCYTE IMMUNE GLOBULIN [Suspect]
     Indication: APLASTIC ANAEMIA
     Dosage: 2.5 mg/kg/day
     Route: 041

REACTIONS (1)
  - Candidiasis [Recovered/Resolved]
